FAERS Safety Report 5213807-8 (Version None)
Quarter: 2007Q1

REPORT INFORMATION
  Report Type: 
  Country: None (occurrence: None)
  Receive Date: 20070119
  Receipt Date: 20070110
  Transmission Date: 20070707
  Serious: Yes (Death)
  Sender: FDA-Public Use
  Company Number: US-PFIZER INC-2005156995

PATIENT
  Sex: Male

DRUGS (6)
  1. GABAPENTIN [Suspect]
     Indication: BIPOLAR DISORDER
     Route: 048
  2. ACETAMINOPHEN AND CODEINE PHOSPHATE [Concomitant]
  3. VASOTEC [Concomitant]
  4. ESKALITH [Concomitant]
  5. INDOMETHACIN [Concomitant]
  6. TRAZODONE HCL [Concomitant]

REACTIONS (2)
  - COMPLETED SUICIDE [None]
  - DRUG INEFFECTIVE [None]
